FAERS Safety Report 17131860 (Version 1)
Quarter: 2019Q4

REPORT INFORMATION
  Report Type: Spontaneous
  Country: US (occurrence: US)
  Receive Date: 20191209
  Receipt Date: 20191209
  Transmission Date: 20200122
  Serious: No
  Sender: FDA-Public Use
  Company Number: US-UCBSA-2016048705

PATIENT
  Age: 62 Year
  Sex: Female

DRUGS (1)
  1. CIMZIA [Suspect]
     Active Substance: CERTOLIZUMAB PEGOL
     Indication: PRODUCT USED FOR UNKNOWN INDICATION
     Dosage: UNK

REACTIONS (9)
  - Injection site bruising [Unknown]
  - Face oedema [Unknown]
  - Injection site mass [Unknown]
  - Hypoaesthesia [Unknown]
  - Dyspnoea [Recovered/Resolved]
  - Body fat disorder [Unknown]
  - Abdominal pain [Unknown]
  - Pruritus [Unknown]
  - Chromaturia [Unknown]

NARRATIVE: CASE EVENT DATE: 20180201
